FAERS Safety Report 7347309-X (Version None)
Quarter: 2011Q1

REPORT INFORMATION
  Report Type: 
  Country: None (occurrence: None)
  Receive Date: 20110311
  Receipt Date: 20110307
  Transmission Date: 20110831
  Serious: Yes (Death)
  Sender: FDA-Public Use
  Company Number: FR-ROCHE-711813

PATIENT
  Sex: Male
  Weight: 59 kg

DRUGS (18)
  1. CLOPIDOGREL [Concomitant]
     Dates: start: 20020101
  2. PARACETAMOL [Concomitant]
     Dates: start: 20091201
  3. ACETYLSALICYLATE LYSINE [Concomitant]
     Dates: start: 20020101
  4. ESOMEPRAZOLE [Concomitant]
  5. SODIUM HYPOCHLORITE [Concomitant]
     Dates: start: 20100122, end: 20100205
  6. FUSIDIC ACID [Concomitant]
     Dates: start: 20100122, end: 20100205
  7. MOXYDAR [Concomitant]
  8. PHLOROGLUCINOL [Concomitant]
     Dates: start: 20091201
  9. BEVACIZUMAB [Suspect]
     Dosage: FREQUENCY: EVERY OTHER WEEK
     Route: 042
     Dates: start: 20091218, end: 20100305
  10. SIMVASTATIN [Concomitant]
     Dates: start: 20040101
  11. DOMPERIDONE [Concomitant]
  12. OMEPRAZOLE [Concomitant]
     Dates: start: 20020101
  13. LOPERAMIDE [Concomitant]
     Dates: start: 20100125, end: 20100127
  14. AMOROLFINE [Concomitant]
     Dates: start: 20100205
  15. TEMSIROLIMUS [Suspect]
     Route: 042
     Dates: start: 20091218, end: 20100305
  16. LISINOPRIL [Concomitant]
     Dates: start: 20020101
  17. ATENOLOL [Concomitant]
     Dates: start: 20020101
  18. ELISOR [Concomitant]
     Dates: start: 20020101

REACTIONS (1)
  - SUDDEN DEATH [None]
